FAERS Safety Report 4357885-7 (Version None)
Quarter: 2004Q2

REPORT INFORMATION
  Report Type: 
  Country: None (occurrence: None)
  Receive Date: 20040510
  Receipt Date: 20040422
  Transmission Date: 20050107
  Serious: Yes (Hospitalization)
  Sender: FDA-Public Use
  Company Number: 10054093-04A16G50-1

PATIENT
  Age: 17 Year
  Sex: Male

DRUGS (5)
  1. FPB1307G-SODIUM CHLORIDE 0.9%, 100 ML [Suspect]
     Dosage: 100ML, INTRAVENOUS
     Route: 042
  2. METOCLOROPRAMIDE [Concomitant]
  3. THIOGUANINE [Concomitant]
  4. ACETAMINOPHEN [Concomitant]
  5. LANDZOPRAZOLE [Concomitant]

REACTIONS (6)
  - BLOOD PRESSURE DECREASED [None]
  - CHEST PAIN [None]
  - DYSPNOEA [None]
  - HYPERHIDROSIS [None]
  - PHARMACEUTICAL PRODUCT COMPLAINT [None]
  - TACHYCARDIA [None]
